FAERS Safety Report 8959616 (Version 4)
Quarter: 2014Q2

REPORT INFORMATION
  Report Type: Spontaneous
  Country: FR (occurrence: FR)
  Receive Date: 20121211
  Receipt Date: 20140523
  Transmission Date: 20141212
  Serious: Yes (Hospitalization)
  Sender: FDA-Public Use
  Company Number: PHHY2012FR112967

PATIENT
  Age: 54 Year
  Sex: Female

DRUGS (3)
  1. GLIVEC [Suspect]
     Dosage: UNK UKN, UNK
     Route: 048
     Dates: start: 20121014, end: 20121029
  2. RAMIPRIL [Suspect]
     Dosage: 10 MG, QD
     Route: 048
     Dates: end: 20121029
  3. RAMIPRIL [Suspect]
     Dosage: UNK UKN, UNK
     Dates: start: 201401

REACTIONS (6)
  - Salivary hypersecretion [Recovered/Resolved]
  - Glossodynia [Recovered/Resolved]
  - Dysphonia [Recovered/Resolved]
  - Lip oedema [Recovered/Resolved]
  - Tongue oedema [Recovered/Resolved]
  - Hypotension [Recovered/Resolved]
